FAERS Safety Report 4750546-1 (Version None)
Quarter: 2005Q3

REPORT INFORMATION
  Report Type: 
  Country: None (occurrence: None)
  Receive Date: 20050823
  Receipt Date: 20050324
  Transmission Date: 20060218
  Serious: Yes (Hospitalization, Disabling)
  Sender: FDA-Public Use
  Company Number: US-MERCK-0503USA04585

PATIENT
  Age: 61 Year
  Sex: Female
  Weight: 61 kg

DRUGS (29)
  1. VIOXX [Suspect]
     Indication: ARTHRITIS
     Route: 048
     Dates: start: 20010101, end: 20041001
  2. VIOXX [Suspect]
     Indication: BACK PAIN
     Route: 048
     Dates: start: 20010101, end: 20041001
  3. FLOVENT [Concomitant]
     Indication: ASTHMA
     Route: 065
  4. COMBIVENT [Concomitant]
     Indication: ASTHMA
     Route: 065
  5. ADVAIR DISKUS 100/50 [Concomitant]
     Indication: ASTHMA
     Route: 065
  6. PREDNISONE [Concomitant]
     Indication: ASTHMA
     Route: 065
  7. LOPRESSOR [Concomitant]
     Route: 065
  8. ASPIRIN [Concomitant]
     Route: 065
     Dates: start: 20040101
  9. XANAX [Concomitant]
     Indication: ANXIETY
     Route: 065
     Dates: start: 19960101
  10. XANAX [Concomitant]
     Indication: DEPRESSION
     Route: 065
     Dates: start: 19960101
  11. DESYREL [Concomitant]
     Indication: ANXIETY
     Route: 065
     Dates: start: 19980701
  12. DESYREL [Concomitant]
     Indication: DEPRESSION
     Route: 065
     Dates: start: 19980701
  13. PAXIL [Concomitant]
     Indication: ANXIETY
     Route: 065
     Dates: start: 20021201
  14. PAXIL [Concomitant]
     Indication: DEPRESSION
     Route: 065
     Dates: start: 20021201
  15. PREVACID [Concomitant]
     Indication: GASTROOESOPHAGEAL REFLUX DISEASE
     Route: 065
  16. PRILOSEC [Concomitant]
     Indication: GASTRITIS
     Route: 065
  17. PEPCID [Concomitant]
     Route: 065
  18. LIPITOR [Concomitant]
     Indication: BLOOD CHOLESTEROL INCREASED
     Route: 065
     Dates: start: 19980401
  19. DIOVAN [Concomitant]
     Indication: HYPERTENSION
     Route: 065
     Dates: start: 19960501
  20. AMBIEN [Concomitant]
     Route: 065
  21. TUSSAFED [Concomitant]
     Route: 065
  22. LEVAQUIN [Concomitant]
     Indication: ASTHMA
     Route: 065
  23. PHENERGAN EXPECTORANT W/ CODEINE [Concomitant]
     Route: 065
  24. ULTRAVATE [Concomitant]
     Route: 065
  25. DIFLUCAN [Concomitant]
     Route: 065
  26. DITROPAN [Concomitant]
     Route: 065
  27. PREMPRO [Concomitant]
     Indication: MENOPAUSE
     Route: 065
     Dates: start: 20001201
  28. ZYRTEC [Concomitant]
     Route: 065
  29. ALBUTEROL [Concomitant]
     Route: 065

REACTIONS (5)
  - CEREBROVASCULAR ACCIDENT [None]
  - DEPRESSION [None]
  - HYPERTENSION [None]
  - MYOCARDIAL INFARCTION [None]
  - PAIN [None]
